FAERS Safety Report 8602971-6 (Version None)
Quarter: 2012Q3

REPORT INFORMATION
  Report Type: 
  Country: None (occurrence: None)
  Receive Date: 20120817
  Receipt Date: 20120815
  Transmission Date: 20120928
  Serious: Yes (Death, Hospitalization)
  Sender: FDA-Public Use
  Company Number: US-ROCHE-1082651

PATIENT
  Age: 62 Year
  Sex: Male
  Weight: 64.922 kg

DRUGS (2)
  1. AVASTIN [Suspect]
     Indication: COLORECTAL CANCER
     Route: 042
     Dates: end: 20120701
  2. FLUOROURACIL [Concomitant]
     Indication: COLORECTAL CANCER
     Route: 042

REACTIONS (4)
  - DEATH [None]
  - ASTHENIA [None]
  - DIARRHOEA [None]
  - DEHYDRATION [None]
